FAERS Safety Report 5191229-6 (Version None)
Quarter: 2006Q4

REPORT INFORMATION
  Report Type: 
  Country: None (occurrence: None)
  Receive Date: 20061221
  Receipt Date: 20061221
  Transmission Date: 20070319
  Serious: Yes (Other)
  Sender: FDA-Public Use
  Company Number: None

PATIENT
  Sex: Male

DRUGS (1)
  1. ZICAM NASAL SPRAY [Suspect]

REACTIONS (2)
  - ANOSMIA [None]
  - VIRAL INFECTION [None]
